FAERS Safety Report 5764887-2 (Version None)
Quarter: 2008Q2

REPORT INFORMATION
  Report Type: 
  Country: None (occurrence: None)
  Receive Date: 20080611
  Receipt Date: 20080604
  Transmission Date: 20081010
  Serious: Yes (Other)
  Sender: FDA-Public Use
  Company Number: JP-AVENTIS-200811722JP

PATIENT
  Age: 57 Year
  Sex: Male

DRUGS (2)
  1. DOCETAXEL [Suspect]
  2. NEDAPLATIN [Concomitant]

REACTIONS (1)
  - TUMOUR LYSIS SYNDROME [None]
